FAERS Safety Report 4349340-5 (Version None)
Quarter: 2004Q2

REPORT INFORMATION
  Report Type: 
  Country: None (occurrence: None)
  Receive Date: 20040426
  Receipt Date: 20040413
  Transmission Date: 20050107
  Serious: No
  Sender: FDA-Public Use
  Company Number: 04P-167-0257635-00

PATIENT
  Age: 40 Year
  Sex: Male
  Weight: 160 kg

DRUGS (5)
  1. MERIDIA [Suspect]
     Indication: OBESITY
     Dosage: 10 MG, 1 IN 1 D, PER ORAL
     Route: 048
     Dates: start: 20040223, end: 20040303
  2. BECLOMETHASONE DIPROPIONATE [Concomitant]
  3. ALBUTEROL SULFATE [Concomitant]
  4. RABEPRAZOLE SODIUM [Concomitant]
  5. SALMETEROL [Concomitant]

REACTIONS (1)
  - ASTHMA [None]
